FAERS Safety Report 21238155 (Version 1)
Quarter: 2022Q3

REPORT INFORMATION
  Report Type: Report from Study
  Country: US (occurrence: US)
  Receive Date: 20220822
  Receipt Date: 20220822
  Transmission Date: 20221026
  Serious: Yes (Other)
  Sender: FDA-Public Use
  Company Number: US-Accord-273766

PATIENT
  Sex: Female

DRUGS (1)
  1. CLOZAPINE [Suspect]
     Active Substance: CLOZAPINE
     Indication: Product used for unknown indication
     Dosage: 500MG DAILY
     Route: 048

REACTIONS (4)
  - Dementia [Unknown]
  - Schizophrenia [Unknown]
  - Cardiac disorder [Unknown]
  - Obesity [Unknown]
